FAERS Safety Report 24903255 (Version 1)
Quarter: 2025Q1

REPORT INFORMATION
  Report Type: Spontaneous
  Country: US (occurrence: US)
  Receive Date: 20250130
  Receipt Date: 20250130
  Transmission Date: 20250408
  Serious: No
  Sender: AUROBINDO
  Company Number: US-AUROBINDO-AUR-APL-2024-043742

PATIENT
  Sex: Male

DRUGS (1)
  1. LORAZEPAM [Suspect]
     Active Substance: LORAZEPAM
     Indication: Product used for unknown indication
     Route: 065

REACTIONS (6)
  - Lip swelling [Unknown]
  - Pharyngeal swelling [Unknown]
  - Hypersensitivity [Unknown]
  - Product use complaint [Unknown]
  - Product substitution issue [Unknown]
  - Product quality issue [Unknown]
